FAERS Safety Report 8854925 (Version 1)
Quarter: 2012Q4

REPORT INFORMATION
  Report Type: Report from Study
  Country: CA (occurrence: CA)
  Receive Date: 20121023
  Receipt Date: 20121023
  Transmission Date: 20130627
  Serious: Yes (Other)
  Sender: FDA-Public Use
  Company Number: CA-JNJFOC-20121007372

PATIENT
  Age: 40 Year
  Sex: Female
  Weight: 55 kg

DRUGS (7)
  1. REMICADE [Suspect]
     Indication: COLITIS ULCERATIVE
     Route: 042
     Dates: start: 20120927
  2. SALOFALK [Concomitant]
     Route: 065
  3. CORTIFOAM [Concomitant]
     Route: 065
  4. IMOVANE [Concomitant]
     Dosage: dose 7.5
     Route: 065
  5. ALL OTHER THERAPEUTICS [Concomitant]
     Route: 065
  6. MEZAVANT [Concomitant]
     Route: 065
  7. PREDNISONE [Concomitant]
     Route: 065

REACTIONS (3)
  - Blood urine present [Recovering/Resolving]
  - Pain [Recovering/Resolving]
  - Fatigue [Recovering/Resolving]
